FAERS Safety Report 18518224 (Version 1)
Quarter: 2020Q4

REPORT INFORMATION
  Report Type: Spontaneous
  Country: JP (occurrence: JP)
  Receive Date: 20201118
  Receipt Date: 20201118
  Transmission Date: 20210114
  Serious: Yes (Death)
  Sender: FDA-Public Use
  Company Number: JP-ROCHE-2676865

PATIENT
  Age: 10 Decade
  Sex: Male

DRUGS (4)
  1. ACTEMRA [Suspect]
     Active Substance: TOCILIZUMAB
     Indication: COVID-19
     Dosage: DOSAGE IS UNCERTAIN.
     Route: 041
     Dates: start: 20200824
  2. METHYLPREDNISOLONE. [Concomitant]
     Active Substance: METHYLPREDNISOLONE
     Indication: ANTIINFLAMMATORY THERAPY
     Dosage: DOSAGE IS UNCERTAIN.
     Route: 065
     Dates: start: 20200818, end: 20200906
  3. ACTEMRA [Suspect]
     Active Substance: TOCILIZUMAB
     Indication: CYTOKINE STORM
  4. DEXART [Concomitant]
     Active Substance: DEXAMETHASONE SODIUM PHOSPHATE
     Indication: ANTIINFLAMMATORY THERAPY
     Route: 065
     Dates: start: 20200818, end: 20200906

REACTIONS (3)
  - Intentional product use issue [Fatal]
  - COVID-19 [Fatal]
  - Off label use [Fatal]
